FAERS Safety Report 13583546 (Version 36)
Quarter: 2019Q4

REPORT INFORMATION
  Report Type: Spontaneous
  Country: CA (occurrence: CA)
  Receive Date: 20170526
  Receipt Date: 20191216
  Transmission Date: 20200122
  Serious: Yes (Other)
  Sender: FDA-Public Use
  Company Number: CA-ROCHE-1939213

PATIENT
  Age: 43 Year
  Sex: Female
  Weight: 90 kg

DRUGS (37)
  1. XOLAIR [Suspect]
     Active Substance: OMALIZUMAB
     Route: 058
  2. XOLAIR [Suspect]
     Active Substance: OMALIZUMAB
     Route: 058
     Dates: start: 20180628
  3. XOLAIR [Suspect]
     Active Substance: OMALIZUMAB
     Route: 058
     Dates: start: 20180906
  4. XOLAIR [Suspect]
     Active Substance: OMALIZUMAB
     Route: 058
     Dates: start: 20181129
  5. XOLAIR [Suspect]
     Active Substance: OMALIZUMAB
     Route: 058
     Dates: start: 20190521
  6. XOLAIR [Suspect]
     Active Substance: OMALIZUMAB
     Route: 058
     Dates: start: 20190717
  7. SINGULAIR [Concomitant]
     Active Substance: MONTELUKAST SODIUM
     Indication: PRODUCT USED FOR UNKNOWN INDICATION
     Dosage: UNK
     Route: 065
  8. XOLAIR [Suspect]
     Active Substance: OMALIZUMAB
     Route: 058
     Dates: start: 20180406
  9. XOLAIR [Suspect]
     Active Substance: OMALIZUMAB
     Route: 058
     Dates: start: 20181228
  10. XOLAIR [Suspect]
     Active Substance: OMALIZUMAB
     Route: 058
  11. XOLAIR [Suspect]
     Active Substance: OMALIZUMAB
     Route: 058
     Dates: start: 20170420
  12. XOLAIR [Suspect]
     Active Substance: OMALIZUMAB
     Route: 058
     Dates: start: 20180725
  13. XOLAIR [Suspect]
     Active Substance: OMALIZUMAB
     Route: 058
     Dates: start: 20181017
  14. XOLAIR [Suspect]
     Active Substance: OMALIZUMAB
     Route: 058
     Dates: start: 20181031
  15. XOLAIR [Suspect]
     Active Substance: OMALIZUMAB
     Route: 058
     Dates: start: 20190508
  16. XOLAIR [Suspect]
     Active Substance: OMALIZUMAB
     Route: 058
     Dates: start: 20190815
  17. XOLAIR [Suspect]
     Active Substance: OMALIZUMAB
     Route: 058
     Dates: start: 20191205
  18. XOLAIR [Suspect]
     Active Substance: OMALIZUMAB
     Route: 058
     Dates: start: 20170209
  19. RUPALL [Suspect]
     Active Substance: RUPATADINE FUMARATE
     Indication: NASAL CONGESTION
  20. ALVESCO [Concomitant]
     Active Substance: CICLESONIDE
     Indication: PRODUCT USED FOR UNKNOWN INDICATION
     Dosage: UNK
     Route: 065
  21. XOLAIR [Suspect]
     Active Substance: OMALIZUMAB
     Route: 058
     Dates: start: 20170907
  22. XOLAIR [Suspect]
     Active Substance: OMALIZUMAB
     Route: 058
     Dates: start: 20180125
  23. XOLAIR [Suspect]
     Active Substance: OMALIZUMAB
     Route: 058
     Dates: start: 20190131
  24. XOLAIR [Suspect]
     Active Substance: OMALIZUMAB
     Route: 058
     Dates: start: 20190703
  25. XOLAIR [Suspect]
     Active Substance: OMALIZUMAB
     Route: 058
     Dates: start: 20170517
  26. XOLAIR [Suspect]
     Active Substance: OMALIZUMAB
     Route: 058
     Dates: start: 20170810
  27. XOLAIR [Suspect]
     Active Substance: OMALIZUMAB
     Route: 058
  28. REACTINE [CETIRIZINE HYDROCHLORIDE] [Suspect]
     Active Substance: CETIRIZINE HYDROCHLORIDE
     Indication: RESPIRATORY TRACT CONGESTION
     Route: 065
  29. RUPALL [Suspect]
     Active Substance: RUPATADINE FUMARATE
     Indication: HYPERSENSITIVITY
     Route: 065
  30. OXEZE [Concomitant]
     Active Substance: FORMOTEROL FUMARATE
     Indication: PRODUCT USED FOR UNKNOWN INDICATION
     Dosage: UNK
     Route: 065
  31. XOLAIR [Suspect]
     Active Substance: OMALIZUMAB
     Route: 058
     Dates: start: 20171019
  32. XOLAIR [Suspect]
     Active Substance: OMALIZUMAB
     Route: 058
     Dates: start: 20190410
  33. XOLAIR [Suspect]
     Active Substance: OMALIZUMAB
     Indication: ASTHMA
     Route: 058
     Dates: start: 20101220
  34. XOLAIR [Suspect]
     Active Substance: OMALIZUMAB
     Route: 058
     Dates: start: 20170504
  35. XOLAIR [Suspect]
     Active Substance: OMALIZUMAB
     Route: 058
     Dates: start: 20170713
  36. XOLAIR [Suspect]
     Active Substance: OMALIZUMAB
     Route: 058
     Dates: start: 20190605
  37. GRAVOL [Concomitant]
     Active Substance: DIMENHYDRINATE
     Indication: PRODUCT USED FOR UNKNOWN INDICATION
     Dosage: UNK
     Route: 065

REACTIONS (48)
  - Oropharyngeal pain [Unknown]
  - Fatigue [Recovering/Resolving]
  - Anxiety [Unknown]
  - Lip swelling [Recovering/Resolving]
  - Erythema [Recovering/Resolving]
  - Hormone level abnormal [Unknown]
  - Nasal congestion [Recovering/Resolving]
  - Ear infection [Not Recovered/Not Resolved]
  - Feeling abnormal [Recovering/Resolving]
  - Ear pain [Not Recovered/Not Resolved]
  - Hot flush [Recovering/Resolving]
  - Joint injury [Unknown]
  - Middle insomnia [Unknown]
  - Breast injury [Unknown]
  - Breast mass [Unknown]
  - Dust allergy [Unknown]
  - Injection site pain [Recovered/Resolved]
  - Nausea [Recovered/Resolved]
  - Vertigo positional [Unknown]
  - Abdominal pain upper [Unknown]
  - Headache [Recovering/Resolving]
  - Multiple allergies [Not Recovered/Not Resolved]
  - Breath sounds abnormal [Unknown]
  - Sinusitis [Recovering/Resolving]
  - Vaginal haemorrhage [Unknown]
  - Dyspnoea [Unknown]
  - Nasal discharge discolouration [Unknown]
  - Musculoskeletal chest pain [Unknown]
  - Hyperhidrosis [Recovering/Resolving]
  - Nasopharyngitis [Recovering/Resolving]
  - Weight increased [Not Recovered/Not Resolved]
  - Decreased activity [Unknown]
  - Hypersensitivity [Not Recovered/Not Resolved]
  - Sleep apnoea syndrome [Unknown]
  - Body temperature increased [Recovered/Resolved]
  - Limb injury [Unknown]
  - Skin sensitisation [Unknown]
  - Oedema [Unknown]
  - Stress [Unknown]
  - Costochondritis [Unknown]
  - Malaise [Recovering/Resolving]
  - Pneumonitis [Unknown]
  - Neck mass [Unknown]
  - Scratch [Recovering/Resolving]
  - Viral infection [Unknown]
  - Dyspepsia [Unknown]
  - Pyrexia [Recovered/Resolved]
  - Cough [Unknown]

NARRATIVE: CASE EVENT DATE: 2016
